FAERS Safety Report 9198403 (Version 1)
Quarter: 2013Q1

REPORT INFORMATION
  Report Type: Spontaneous
  Country: US (occurrence: None)
  Receive Date: 20130327
  Receipt Date: 20130327
  Transmission Date: 20140127
  Serious: Yes (Other)
  Sender: FDA-Public Use
  Company Number: None

PATIENT
  Age: 54 Year
  Sex: Female
  Weight: 76.66 kg

DRUGS (1)
  1. FOLGARD OS [Suspect]
     Dosage: 4 DOSES A DAY 2 TIMES A DAY 2 PILLS.
     Dates: start: 20130318

REACTIONS (2)
  - Feeling hot [None]
  - Vomiting [None]
